FAERS Safety Report 8040126-7 (Version None)
Quarter: 2012Q1

REPORT INFORMATION
  Report Type: 
  Country: None (occurrence: None)
  Receive Date: 20120111
  Receipt Date: 20111227
  Transmission Date: 20120608
  Serious: No
  Sender: FDA-Public Use
  Company Number: US-AMGEN-USASP2011067011

PATIENT
  Age: 59 Year
  Sex: Female

DRUGS (5)
  1. ENBREL [Suspect]
     Indication: RAYNAUD'S PHENOMENON
  2. ENBREL [Suspect]
     Indication: RHEUMATOID ARTHRITIS
     Dosage: 50 MG, QWK
     Dates: start: 20111130
  3. ENBREL [Suspect]
     Indication: MONOCLONAL GAMMOPATHY
  4. ENBREL [Suspect]
     Indication: SJOGREN'S SYNDROME
  5. ENBREL [Suspect]
     Indication: SYSTEMIC LUPUS ERYTHEMATOSUS

REACTIONS (7)
  - ANXIETY [None]
  - DIARRHOEA [None]
  - DECREASED APPETITE [None]
  - TREMOR [None]
  - NAUSEA [None]
  - VOMITING [None]
  - HEADACHE [None]
